FAERS Safety Report 22337553 (Version 1)
Quarter: 2023Q2

REPORT INFORMATION
  Report Type: Spontaneous
  Country: US (occurrence: None)
  Receive Date: 20230517
  Receipt Date: 20230517
  Transmission Date: 20230721
  Serious: No
  Sender: FDA-Public Use
  Company Number: None

PATIENT
  Age: 67 Year
  Sex: Female
  Weight: 71.01 kg

DRUGS (7)
  1. SAXENDA [Suspect]
     Active Substance: LIRAGLUTIDE
     Indication: Obesity
     Dosage: OTHER QUANTITY : 3 MG;?
     Route: 058
     Dates: start: 20230116, end: 20230515
  2. FORTEO [Concomitant]
     Active Substance: TERIPARATIDE
  3. VITAMIN D3 [Concomitant]
     Active Substance: CHOLECALCIFEROL
  4. CETIRIZINE [Concomitant]
     Active Substance: CETIRIZINE HYDROCHLORIDE
  5. Prebiothrive Gundry MD [Concomitant]
  6. MCT Wellness Gundry MD [Concomitant]
  7. Gundry MD Bio Complete 3 [Concomitant]

REACTIONS (4)
  - Injection site erythema [None]
  - Injection site pain [None]
  - Injection site pruritus [None]
  - Injection site swelling [None]

NARRATIVE: CASE EVENT DATE: 20230508
